FAERS Safety Report 7077854-6 (Version None)
Quarter: 2010Q4

REPORT INFORMATION
  Report Type: 
  Country: None (occurrence: None)
  Receive Date: 20101101
  Receipt Date: 20101019
  Transmission Date: 20110411
  Serious: No
  Sender: FDA-Public Use
  Company Number: CA-ELI_LILLY_AND_COMPANY-CA201010004187

PATIENT
  Sex: Female

DRUGS (19)
  1. ZYPREXA [Suspect]
     Dosage: 5-10MG, DAILY (1/D)
     Route: 048
  2. ZYPREXA [Suspect]
     Dosage: 10 MG, DAILY (1/D)
     Route: 048
  3. ZYPREXA [Suspect]
     Dosage: 5 MG, DAILY (1/D)
     Route: 048
  4. PREMPLUS [Concomitant]
     Dosage: 0.625-2.5, DAILY (1/D)
  5. AMOXICILLIN [Concomitant]
     Dosage: 500 MG, 3/D
     Route: 065
  6. CES [Concomitant]
     Dosage: 0.625, DAILY (1/D)
     Route: 065
  7. APO-MEDROXY [Concomitant]
     Dosage: 2.5 MG, DAILY (1/D)
     Route: 065
  8. KOFFEX [Concomitant]
     Dosage: 3 MG/ML, 1-2 TEASPOON 4/D
     Route: 065
  9. GEN-MEDROXY [Concomitant]
     Dosage: 2.5 MG, DAILY (1/D)
     Route: 065
  10. JANUVIA [Concomitant]
     Dosage: 100 MG, HALF TABLET DAILY (1/D)
     Route: 065
  11. NOVAMOXIN [Concomitant]
     Dosage: 500 MG, 3/D
     Route: 065
  12. RAN-CEFPROZIL [Concomitant]
     Dosage: 500 MG, 2/D
     Route: 065
  13. PAXIL [Concomitant]
     Dosage: UNK, UNKNOWN
     Route: 065
  14. AVELOX [Concomitant]
     Dosage: 400 MG, DAILY (1/D)
     Route: 065
  15. ELOCON [Concomitant]
     Dosage: UNK, 2/D
     Route: 065
  16. FUCIDINE CAP [Concomitant]
     Dosage: UNK, 2/D
     Route: 065
  17. AMCINONIDE [Concomitant]
     Dosage: UNK, 2/D
     Route: 065
  18. APO-ACETAMINOPHEN [Concomitant]
     Indication: PAIN
     Dosage: UNK, 1-2 TABLETS WHEN NEEDED
     Route: 065
  19. NOVO-AZITHROMYCIN [Concomitant]
     Dosage: 250 MG, TWO TABLETS ONCE DAILY THE FIRST DAY THEN ONE TABLET DAILY (1/D)
     Route: 065

REACTIONS (11)
  - BLOOD TRIGLYCERIDES INCREASED [None]
  - DIABETES MELLITUS [None]
  - HAEMATOCRIT INCREASED [None]
  - HAEMOGLOBIN INCREASED [None]
  - HIGH DENSITY LIPOPROTEIN DECREASED [None]
  - HYPOAESTHESIA [None]
  - MALAISE [None]
  - PERIPHERAL COLDNESS [None]
  - RED BLOOD CELL COUNT INCREASED [None]
  - TOTAL CHOLESTEROL/HDL RATIO [None]
  - VISION BLURRED [None]
